FAERS Safety Report 4502688-3 (Version None)
Quarter: 2004Q4

REPORT INFORMATION
  Report Type: 
  Country: None (occurrence: None)
  Receive Date: 20041109
  Receipt Date: 20041028
  Transmission Date: 20050328
  Serious: Yes (Hospitalization, Other)
  Sender: FDA-Public Use
  Company Number: NLWYE158229OCT04

PATIENT
  Sex: Male

DRUGS (1)
  1. EFFEXOR [Suspect]
     Dosage: 75 MG ORAL/STARTED BEFORE OCCURRENCE OF PREGNANCY
     Route: 048

REACTIONS (4)
  - MOANING [None]
  - NEONATAL INFECTION [None]
  - NEONATAL TACHYPNOEA [None]
  - SHOULDER DYSTOCIA [None]
